FAERS Safety Report 18605697 (Version 1)
Quarter: 2020Q4

REPORT INFORMATION
  Report Type: Spontaneous
  Country: FR (occurrence: FR)
  Receive Date: 20201211
  Receipt Date: 20201211
  Transmission Date: 20210114
  Serious: Yes (Hospitalization)
  Sender: FDA-Public Use
  Company Number: FR-TEVA-2020-FR-1856765

PATIENT
  Age: 78 Year
  Sex: Male
  Weight: 90 kg

DRUGS (17)
  1. RIFAMPICINE [Concomitant]
     Active Substance: RIFAMPIN
  2. DIFFU K [Suspect]
     Active Substance: POTASSIUM CHLORIDE
     Indication: HYPOKALAEMIA
     Dosage: 3 DOSAGE FORMS
     Route: 048
     Dates: end: 20170721
  3. ALLOPURINOL. [Concomitant]
     Active Substance: ALLOPURINOL
  4. UVEDOSE [Concomitant]
     Active Substance: CHOLECALCIFEROL
  5. VITAMIN D3 [Concomitant]
     Active Substance: CHOLECALCIFEROL
  6. ROSUVASTATINE [Concomitant]
     Active Substance: ROSUVASTATIN
  7. TAVANIC [Concomitant]
     Active Substance: LEVOFLOXACIN
  8. BISOCE [Concomitant]
     Active Substance: BISOPROLOL
  9. EUPANTOL [Concomitant]
     Active Substance: PANTOPRAZOLE SODIUM
  10. LASILIX [Suspect]
     Active Substance: FUROSEMIDE
     Indication: HYPERTENSION
     Dosage: 1 GRAM
     Route: 048
     Dates: end: 20170721
  11. LANTUS [Concomitant]
     Active Substance: INSULIN GLARGINE
  12. PANTOPRAZOLE [Concomitant]
     Active Substance: PANTOPRAZOLE
  13. AMLOR [Concomitant]
     Active Substance: AMLODIPINE BESYLATE
  14. PREVISCAN [Concomitant]
  15. VALSARTAN. [Suspect]
     Active Substance: VALSARTAN
     Indication: HYPERTENSION
     Route: 065
     Dates: end: 20170721
  16. MIMPARA [Concomitant]
     Active Substance: CINACALCET HYDROCHLORIDE
  17. ASPIRINE PROTECT [Concomitant]
     Active Substance: ASPIRIN

REACTIONS (2)
  - Acute kidney injury [Recovered/Resolved]
  - Hyperkalaemia [Recovered/Resolved]

NARRATIVE: CASE EVENT DATE: 20170721
